FAERS Safety Report 9058585 (Version 5)
Quarter: 2013Q2

REPORT INFORMATION
  Report Type: Spontaneous
  Country: JP (occurrence: JP)
  Receive Date: 20130211
  Receipt Date: 20130501
  Transmission Date: 20140414
  Serious: Yes (Hospitalization)
  Sender: FDA-Public Use
  Company Number: JP-VERTEX PHARMACEUTICALS INC.-2013-001608

PATIENT
  Age: 65 Year
  Sex: Male

DRUGS (17)
  1. TELAVIC [Suspect]
     Indication: CHRONIC HEPATITIS C
     Dosage: 2250 MG, QD
     Route: 048
     Dates: start: 20121226, end: 20121229
  2. TELAVIC [Suspect]
     Dosage: 1500 MG, QD
     Route: 048
     Dates: start: 20121230, end: 20121230
  3. TELAVIC [Suspect]
     Dosage: 750 MG, QD
     Route: 048
     Dates: start: 20121231, end: 20130131
  4. REBETOL [Suspect]
     Indication: CHRONIC HEPATITIS C
     Dosage: 600 MG, QD
     Route: 048
     Dates: start: 20121226, end: 20130110
  5. REBETOL [Suspect]
     Dosage: 400 MG, QD
     Route: 048
     Dates: start: 20130111, end: 20130124
  6. REBETOL [Suspect]
     Dosage: 200 MG, QD
     Route: 048
     Dates: start: 20130125, end: 20130131
  7. PEGINTRON [Suspect]
     Indication: CHRONIC HEPATITIS C
     Dosage: 1.5 ?G/KG, QW
     Route: 058
     Dates: start: 20121226, end: 20130125
  8. LOXONIN [Suspect]
     Indication: PYREXIA
     Dosage: 60 MG, QD
     Route: 048
     Dates: start: 20121226
  9. ZYLORIC [Suspect]
     Indication: BLOOD URIC ACID INCREASED
     Dosage: 200 MG, QD
     Route: 048
     Dates: start: 20121227, end: 20121230
  10. ZYLORIC [Suspect]
     Dosage: 300 MG, QD
     Route: 048
     Dates: start: 20121231, end: 20130131
  11. EUGLUCON [Concomitant]
     Dosage: 2.5 MG, QD
     Route: 048
  12. GLACTIV [Concomitant]
     Dosage: 50 MG, QD
     Route: 048
  13. SEIBULE [Concomitant]
     Dosage: 150 MG, QD
     Route: 048
  14. LEVEMIR [Concomitant]
     Dosage: 10 DF, QD
     Route: 058
  15. ZETIA [Concomitant]
     Dosage: 10 MG, QD
     Route: 048
     Dates: start: 20121226
  16. GASTER D [Concomitant]
     Dosage: 20 MG, QD
     Route: 048
     Dates: start: 20130204
  17. SELBEX [Concomitant]
     Dosage: 150 MG, QD
     Route: 048
     Dates: start: 20130204

REACTIONS (8)
  - Dermatitis exfoliative [Recovered/Resolved]
  - Renal impairment [Recovered/Resolved]
  - Insomnia [Not Recovered/Not Resolved]
  - Pyrexia [Not Recovered/Not Resolved]
  - Drug eruption [Not Recovered/Not Resolved]
  - Hyperuricaemia [Recovered/Resolved]
  - Haemoglobin decreased [Not Recovered/Not Resolved]
  - Platelet count decreased [Recovered/Resolved]
